FAERS Safety Report 6288183-2 (Version None)
Quarter: 2009Q3

REPORT INFORMATION
  Report Type: 
  Country: None (occurrence: None)
  Receive Date: 20090729
  Receipt Date: 20090717
  Transmission Date: 20100115
  Serious: Yes (Hospitalization, Other)
  Sender: FDA-Public Use
  Company Number: PHHY2008JP22712

PATIENT
  Sex: Male

DRUGS (4)
  1. ICL670A ICL+DISTAB [Suspect]
     Indication: MYELODYSPLASTIC SYNDROME
     Dosage: 500 MG DAILY
     Route: 048
     Dates: start: 20080806, end: 20080904
  2. ICL670A ICL+DISTAB [Suspect]
     Indication: IRON OVERLOAD
  3. PREDNISOLONE [Concomitant]
     Indication: APLASTIC ANAEMIA
     Dosage: 15 MG
     Route: 048
     Dates: start: 20080806
  4. RED BLOOD CELLS [Concomitant]
     Dosage: 4 UNITS EVERY FOUR WEEKS
     Route: 065
     Dates: start: 20080530

REACTIONS (2)
  - CHEST PAIN [None]
  - OESOPHAGEAL ULCER [None]
